FAERS Safety Report 5475767-4 (Version None)
Quarter: 2007Q4

REPORT INFORMATION
  Report Type: 
  Country: None (occurrence: None)
  Receive Date: 20071003
  Receipt Date: 20071003
  Transmission Date: 20080405
  Serious: Yes (Hospitalization)
  Sender: FDA-Public Use
  Company Number: A0685603A

PATIENT
  Age: 75 Year
  Sex: Male

DRUGS (5)
  1. ECOTRIN REGULAR STRENGTH TABLETS [Suspect]
     Dosage: 325MG PER DAY
     Route: 048
     Dates: start: 20020101, end: 20070101
  2. CARDIZEM [Concomitant]
  3. DIGOXIN [Concomitant]
  4. METFORMIN HCL [Concomitant]
  5. ONE-A-DAY MULTIVITAMIN [Concomitant]

REACTIONS (6)
  - BLOOD TEST ABNORMAL [None]
  - FATIGUE [None]
  - GASTRIC ULCER [None]
  - HAEMORRHAGE [None]
  - HEART RATE DECREASED [None]
  - MELAENA [None]
